FAERS Safety Report 15169845 (Version 2)
Quarter: 2018Q3

REPORT INFORMATION
  Report Type: Spontaneous
  Country: GB (occurrence: GB)
  Receive Date: 20180720
  Receipt Date: 20180917
  Transmission Date: 20181010
  Serious: Yes (Other)
  Sender: FDA-Public Use
  Company Number: GB-ROCHE-2156617

PATIENT
  Age: 18 Year
  Sex: Male
  Weight: 42 kg

DRUGS (12)
  1. GABAPENTIN. [Interacting]
     Active Substance: GABAPENTIN
     Dosage: THE NIGHT BEFORE SURGERY AND ON THE MORNING OF SURGERY,?MOST RECENT DOSE: 13/MAY/2018
     Route: 065
     Dates: start: 20180513
  2. DIAZEPAM. [Suspect]
     Active Substance: DIAZEPAM
     Indication: PROCEDURAL ANXIETY
     Dosage: MOST RECENT DOE PRIOR TO SAE: 13/MAY/2018
     Route: 065
     Dates: start: 20180513
  3. MAGNESIUM SULFATE. [Interacting]
     Active Substance: MAGNESIUM SULFATE
     Indication: PRODUCT USED FOR UNKNOWN INDICATION
     Route: 065
  4. GABAPENTIN. [Interacting]
     Active Substance: GABAPENTIN
     Indication: PRODUCT USED FOR UNKNOWN INDICATION
     Dosage: THE NIGHT BEFORE SURGERY AND ON THE MORNING OF SURGERY,?MOST RECENT DOSE PRIOR TO SAE: 15/MAY/2018
     Route: 065
     Dates: start: 20180513
  5. FENTANYL. [Interacting]
     Active Substance: FENTANYL
     Indication: SEDATION
     Dosage: MOST RECENT DOE PRIOR TO SAE: 16/MAY/2018
     Route: 040
     Dates: start: 20180514
  6. KETAMINE [Interacting]
     Active Substance: KETAMINE
     Indication: SEDATION
     Dosage: 25 MG BEFORE SKIN INCISION AND 25 MG ABOUT AN OUR BEFORE THE END OF SURGERY.?MOST RECENT DOE PRIOR T
     Route: 065
     Dates: start: 20180514
  7. TRANEXAMIC ACID. [Interacting]
     Active Substance: TRANEXAMIC ACID
     Indication: SEDATION
     Dosage: MOST RECENT DOE PRIOR TO SAE: 14/MAY/2018
     Route: 040
     Dates: start: 20180514
  8. MIDAZOLAM [Interacting]
     Active Substance: MIDAZOLAM HYDROCHLORIDE
     Indication: ANXIETY
     Dosage: HALF AN HOUR BEFORE INDUCTION OF ANAESTHESIA?MOST RECENT DOE PRIOR TO SAE: 14/MAY/2018
     Route: 065
     Dates: start: 20180514
  9. CLONIDINE. [Interacting]
     Active Substance: CLONIDINE
     Indication: SEDATION
     Dosage: 4 ALIQUOTS OF 15 MICROGRAMS OVER SEVERAL HOURS?MOST RECENT DOE PRIOR TO SAE: 14/MAY/2018
     Route: 040
     Dates: start: 20180514
  10. REMIFENTANIL [Interacting]
     Active Substance: REMIFENTANIL
     Indication: SEDATION
     Dosage: PER MINUTE?MOST RECENT DOE PRIOR TO SAE: 14/MAY/2018
     Route: 040
     Dates: start: 20180514
  11. MIDAZOLAM [Interacting]
     Active Substance: MIDAZOLAM HYDROCHLORIDE
     Indication: INDUCTION OF ANAESTHESIA
  12. PROPOFOL. [Interacting]
     Active Substance: PROPOFOL
     Indication: SEDATION
     Dosage: 3.3 MCG/ML?MOST RECENT DOSE PRIOR TO SAE: 14/MAY/2018
     Route: 040
     Dates: start: 20180514

REACTIONS (7)
  - Confusional state [Recovered/Resolved]
  - Drug interaction [Unknown]
  - Aphasia [Recovered/Resolved]
  - Somnolence [Recovered/Resolved]
  - Disorientation [Recovered/Resolved]
  - Nystagmus [Recovered/Resolved]
  - Delirium [Recovered/Resolved]

NARRATIVE: CASE EVENT DATE: 20180514
